FAERS Safety Report 8870939 (Version 1)
Quarter: 2012Q4

REPORT INFORMATION
  Report Type: 
  Country: US (occurrence: US)
  Receive Date: 20121026
  Receipt Date: 20121026
  Transmission Date: 20130627
  Serious: No
  Sender: FDA-Public Use
  Company Number: US-AMGEN-USASP2012046526

PATIENT
  Sex: Female

DRUGS (7)
  1. ENBREL [Suspect]
     Indication: PRODUCT USED FOR UNKNOWN INDICATION
     Dosage: 50 mg/ml, qwk
     Route: 058
  2. SERTRALINE                          /01011401/ [Concomitant]
     Dosage: 25 mg, UNK
  3. VICODIN ES [Concomitant]
     Dosage: 7.5-750
  4. LEVOTHYROXIN [Concomitant]
     Dosage: 100 mug, UNK
  5. BUPROPION [Concomitant]
     Dosage: 150 mg, UNK
  6. LANSOPRAZOLE [Concomitant]
     Dosage: 30 mg, UNK
  7. TIZANIDINE [Concomitant]
     Dosage: 6 mg, UNK

REACTIONS (2)
  - Injection site rash [Unknown]
  - Injection site erythema [Unknown]
